FAERS Safety Report 23263207 (Version 1)
Quarter: 2023Q4

REPORT INFORMATION
  Report Type: Spontaneous
  Country: US (occurrence: None)
  Receive Date: 20231204
  Receipt Date: 20231204
  Transmission Date: 20240110
  Serious: Yes (Life-Threatening, Hospitalization)
  Sender: FDA-Public Use
  Company Number: None

PATIENT
  Age: 36 Year
  Sex: Male
  Weight: 42.3 kg

DRUGS (8)
  1. DESCOVY [Suspect]
     Active Substance: EMTRICITABINE\TENOFOVIR ALAFENAMIDE FUMARATE
     Indication: Prophylaxis against HIV infection
     Dosage: OTHER QUANTITY : 90 TABLET(S);?
     Route: 048
     Dates: start: 20230606, end: 20231027
  2. One Daily Men^s Formula Signature Care [Concomitant]
  3. NICOTINE TRANSDERMAL SYSTEM [Concomitant]
     Active Substance: NICOTINE
  4. BUSPAR [Concomitant]
     Active Substance: BUSPIRONE HYDROCHLORIDE
  5. Saint Johns Wort [Concomitant]
  6. CALCIUM [Concomitant]
     Active Substance: CALCIUM
  7. Triple Omega [Concomitant]
  8. Olly Goodbye Stress gummies [Concomitant]

REACTIONS (4)
  - Diarrhoea [None]
  - Palpitations [None]
  - Hyperphosphataemia [None]
  - Pain [None]

NARRATIVE: CASE EVENT DATE: 20230831
